FAERS Safety Report 5306596-X (Version None)
Quarter: 2007Q2

REPORT INFORMATION
  Report Type: 
  Country: None (occurrence: None)
  Receive Date: 20070424
  Receipt Date: 20070412
  Transmission Date: 20071010
  Serious: Yes (Other)
  Sender: FDA-Public Use
  Company Number: PFIZER INC-2007012041

PATIENT
  Sex: Female

DRUGS (1)
  1. CHANTIX [Suspect]
     Dates: start: 20061001, end: 20061001

REACTIONS (10)
  - ARTHRITIS [None]
  - BIOPSY BREAST [None]
  - COLITIS COLLAGENOUS [None]
  - CONSTIPATION [None]
  - FOOT OPERATION [None]
  - NAUSEA [None]
  - OEDEMA PERIPHERAL [None]
  - OSTEOPOROSIS [None]
  - VOMITING [None]
  - WEIGHT INCREASED [None]
